FAERS Safety Report 15930317 (Version 1)
Quarter: 2019Q1

REPORT INFORMATION
  Report Type: Report from Study
  Country: None (occurrence: CA)
  Receive Date: 20190207
  Receipt Date: 20190207
  Transmission Date: 20190417
  Serious: Yes (Hospitalization)
  Sender: FDA-Public Use
  Company Number: CA-ABBVIE-19K-028-2655172-00

PATIENT
  Sex: Male

DRUGS (1)
  1. HUMIRA [Suspect]
     Active Substance: ADALIMUMAB
     Indication: PSORIATIC ARTHROPATHY
     Route: 058
     Dates: start: 20150404

REACTIONS (4)
  - Decubitus ulcer [Unknown]
  - Osteoarthritis [Unknown]
  - Mobility decreased [Unknown]
  - Dyskinesia [Not Recovered/Not Resolved]

NARRATIVE: CASE EVENT DATE: 2015
